FAERS Safety Report 11014463 (Version 2)
Quarter: 2015Q2

REPORT INFORMATION
  Report Type: Spontaneous
  Country: US (occurrence: US)
  Receive Date: 20150412
  Receipt Date: 20150525
  Transmission Date: 20150821
  Serious: No
  Sender: FDA-Public Use
  Company Number: US-JNJFOC-20140714120

PATIENT
  Age: 49 Year
  Sex: Male

DRUGS (2)
  1. OLYSIO [Suspect]
     Active Substance: SIMEPREVIR
     Indication: HEPATITIS C
     Route: 048
     Dates: start: 20140618
  2. SOVALDI [Suspect]
     Active Substance: SOFOSBUVIR
     Indication: HEPATITIS C
     Route: 065

REACTIONS (5)
  - Diarrhoea [Recovering/Resolving]
  - Insomnia [Recovering/Resolving]
  - Hyperaesthesia [Recovering/Resolving]
  - Abdominal discomfort [Recovering/Resolving]
  - Off label use [Unknown]
